FAERS Safety Report 19377290 (Version 1)
Quarter: 2021Q2

REPORT INFORMATION
  Report Type: Spontaneous
  Country: US (occurrence: US)
  Receive Date: 20210605
  Receipt Date: 20210605
  Transmission Date: 20210717
  Serious: Yes (Hospitalization, Other)
  Sender: FDA-Public Use
  Company Number: US-UCBSA-2021025744

PATIENT
  Age: 78 Year
  Sex: Male

DRUGS (4)
  1. ZONISAMIDE. [Concomitant]
     Active Substance: ZONISAMIDE
     Indication: SEIZURE
     Dosage: 400 MILLIGRAM, ONCE DAILY (QD)
  2. KLONOPIN [Concomitant]
     Active Substance: CLONAZEPAM
     Indication: CLONIC CONVULSION
     Dosage: UNK
     Dates: start: 20200311
  3. VIMPAT [Suspect]
     Active Substance: LACOSAMIDE
     Indication: FRONTAL LOBE EPILEPSY
     Dosage: 200 MILLIGRAM, 2X/DAY (BID)
     Dates: start: 202001
  4. VIMPAT [Suspect]
     Active Substance: LACOSAMIDE
     Dosage: 250 MILLIGRAM, 2X/DAY (BID)
     Dates: start: 20200311

REACTIONS (10)
  - Clonic convulsion [Unknown]
  - Lethargy [Recovering/Resolving]
  - Gait disturbance [Unknown]
  - Dizziness [Unknown]
  - Fall [Unknown]
  - Subdural haematoma [Unknown]
  - Nausea [Unknown]
  - Prescribed overdose [Unknown]
  - Ataxia [Unknown]
  - Vomiting [Unknown]

NARRATIVE: CASE EVENT DATE: 202001
